FAERS Safety Report 16236155 (Version 1)
Quarter: 2019Q2

REPORT INFORMATION
  Report Type: Report from Study
  Country: None (occurrence: US)
  Receive Date: 20190425
  Receipt Date: 20190425
  Transmission Date: 20190711
  Serious: Yes (Hospitalization, Other)
  Sender: FDA-Public Use
  Company Number: US-ABBVIE-18K-163-2424904-00

PATIENT
  Age: 64 Year
  Sex: Female
  Weight: 64.01 kg

DRUGS (14)
  1. HUMIRA [Suspect]
     Active Substance: ADALIMUMAB
     Indication: RHEUMATOID ARTHRITIS
     Route: 058
     Dates: start: 2013, end: 201806
  2. PREDNISONE. [Concomitant]
     Active Substance: PREDNISONE
     Indication: PRODUCT USED FOR UNKNOWN INDICATION
  3. ELIQUIS [Concomitant]
     Active Substance: APIXABAN
     Indication: ATRIAL FIBRILLATION
  4. CARDIZEM [Concomitant]
     Active Substance: DILTIAZEM HYDROCHLORIDE
     Indication: ATRIAL FIBRILLATION
  5. HUMIRA [Suspect]
     Active Substance: ADALIMUMAB
     Route: 058
     Dates: start: 201807
  6. LOSARTAN. [Concomitant]
     Active Substance: LOSARTAN
     Indication: HYPERTENSION
  7. ZANTAC [Concomitant]
     Active Substance: RANITIDINE HYDROCHLORIDE
     Indication: BARRETT^S OESOPHAGUS
  8. MAGNESIUM [Concomitant]
     Active Substance: MAGNESIUM
     Indication: ANALGESIC THERAPY
  9. PLAQUENIL [Concomitant]
     Active Substance: HYDROXYCHLOROQUINE SULFATE
     Indication: RHEUMATOID ARTHRITIS
  10. AMLODIPINE [Concomitant]
     Active Substance: AMLODIPINE BESYLATE
     Indication: ATRIAL FIBRILLATION
  11. OMEPRAZOLE. [Concomitant]
     Active Substance: OMEPRAZOLE
     Indication: BARRETT^S OESOPHAGUS
  12. TRAMADOL. [Concomitant]
     Active Substance: TRAMADOL
     Indication: ANALGESIC THERAPY
  13. IRON [Concomitant]
     Active Substance: IRON
     Indication: BLOOD IRON DECREASED
  14. PREDNISONE. [Concomitant]
     Active Substance: PREDNISONE
     Indication: ANALGESIC THERAPY

REACTIONS (15)
  - Atrial fibrillation [Recovered/Resolved]
  - Surgery [Not Recovered/Not Resolved]
  - Atrial fibrillation [Recovered/Resolved]
  - Atrial fibrillation [Recovered/Resolved]
  - Hand deformity [Unknown]
  - Wheezing [Recovered/Resolved]
  - Hypersensitivity [Unknown]
  - Dysgraphia [Unknown]
  - Nasopharyngitis [Unknown]
  - Blood folate decreased [Unknown]
  - Foot deformity [Unknown]
  - Iron deficiency anaemia [Unknown]
  - Atrial fibrillation [Unknown]
  - Blood potassium decreased [Recovered/Resolved]
  - Allergic cough [Recovered/Resolved]

NARRATIVE: CASE EVENT DATE: 2018
